FAERS Safety Report 17133251 (Version 3)
Quarter: 2019Q4

REPORT INFORMATION
  Report Type: Spontaneous
  Country: FR (occurrence: FR)
  Receive Date: 20191210
  Receipt Date: 20191226
  Transmission Date: 20200122
  Serious: Yes (Hospitalization, Other)
  Sender: FDA-Public Use
  Company Number: FR-AUROBINDO-AUR-APL-2019-103629

PATIENT
  Age: 72 Year
  Sex: Male

DRUGS (5)
  1. DOLUTEGRAVIR;RILPIVIRINE [Suspect]
     Active Substance: DOLUTEGRAVIR SODIUM\RILPIVIRINE HYDROCHLORIDE
     Indication: HIV INFECTION
     Dosage: UNK, QD (50/25 MG PER DAY)
     Route: 065
  2. METFORMIN [Suspect]
     Active Substance: METFORMIN HYDROCHLORIDE
     Indication: TYPE 2 DIABETES MELLITUS
     Dosage: 1000 MILLIGRAM, TWO TIMES A DAY (200 MILLIGRAM, ONCE A DAY) (MORNING AND IN THE EVENING)
     Route: 065
  3. IBUPROFEN. [Interacting]
     Active Substance: IBUPROFEN
     Indication: PRODUCT USED FOR UNKNOWN INDICATION
     Dosage: UNK
     Route: 065
  4. RILPIVIRINE [Suspect]
     Active Substance: RILPIVIRINE
     Indication: HIV INFECTION
     Dosage: 25 MILLIGRAM, ONCE A DAY
     Route: 065
  5. DOLUTEGRAVIR [Interacting]
     Active Substance: DOLUTEGRAVIR
     Indication: HIV INFECTION
     Dosage: 50 MILLIGRAM, ONCE A DAY
     Route: 065

REACTIONS (6)
  - Lactic acidosis [Unknown]
  - Vomiting [Unknown]
  - Glomerular filtration rate decreased [Unknown]
  - Abdominal pain [Unknown]
  - Acute kidney injury [Unknown]
  - Drug interaction [Unknown]
